APPROVED DRUG PRODUCT: HYDROCHLOROTHIAZIDE
Active Ingredient: HYDROCHLOROTHIAZIDE
Strength: 25MG
Dosage Form/Route: TABLET;ORAL
Application: A088924 | Product #001
Applicant: TEVA PHARMACEUTICALS USA INC
Approved: Feb 7, 1985 | RLD: No | RS: No | Type: DISCN